FAERS Safety Report 6365875-8 (Version None)
Quarter: 2009Q3

REPORT INFORMATION
  Report Type: 
  Country: None (occurrence: None)
  Receive Date: 20090919
  Receipt Date: 20090819
  Transmission Date: 20100115
  Serious: No
  Sender: FDA-Public Use
  Company Number: US-ABBOTT-09P-163-0593280-00

PATIENT
  Sex: Female

DRUGS (8)
  1. HUMIRA [Suspect]
     Indication: CROHN'S DISEASE
     Route: 058
     Dates: start: 20071101
  2. LEVOTHYROXINE SODIUM [Concomitant]
     Indication: HYPOTHYROIDISM
  3. SINGULAIR [Concomitant]
     Indication: ALLERGIC SINUSITIS
  4. ADVAIR HFA [Concomitant]
     Indication: ASTHMA
  5. RESCUE INHALER [Concomitant]
     Indication: ASTHMA
  6. NASAL SPRAY [Concomitant]
     Indication: ALLERGIC SINUSITIS
     Route: 045
  7. PENTASA [Concomitant]
     Indication: CROHN'S DISEASE
  8. LORA TAB [Concomitant]
     Indication: BACK PAIN
     Dosage: 1-2 TABLETS AS NEEDED

REACTIONS (2)
  - CROHN'S DISEASE [None]
  - PYREXIA [None]
